FAERS Safety Report 8946062 (Version 1)
Quarter: 2012Q4

REPORT INFORMATION
  Report Type: Report from Study
  Country: CA (occurrence: CA)
  Receive Date: 20121205
  Receipt Date: 20121205
  Transmission Date: 20130627
  Serious: Yes (Hospitalization)
  Sender: FDA-Public Use
  Company Number: CA-JNJFOC-20121112867

PATIENT
  Age: 39 Year
  Sex: Male
  Weight: 102.8 kg

DRUGS (6)
  1. REMICADE [Suspect]
     Indication: CROHN^S DISEASE
     Route: 042
     Dates: start: 20111121
  2. REMICADE [Suspect]
     Indication: CROHN^S DISEASE
     Dosage: 1200mg/500ml
     Route: 042
     Dates: start: 20121126
  3. BENADRYL [Concomitant]
     Indication: PREMEDICATION
     Route: 042
     Dates: start: 20121126
  4. BENADRYL [Concomitant]
     Indication: PREMEDICATION
     Route: 042
  5. SOLUCORTEF [Concomitant]
     Indication: PREMEDICATION
     Route: 042
  6. REACTINE [Concomitant]
     Indication: PREMEDICATION
     Dosage: for 5 days
     Route: 048

REACTIONS (6)
  - Chest discomfort [Recovering/Resolving]
  - Infusion related reaction [Recovering/Resolving]
  - Dyspnoea [Recovering/Resolving]
  - Erythema [Recovering/Resolving]
  - Scleral discolouration [Recovering/Resolving]
  - Eye swelling [Recovering/Resolving]
